FAERS Safety Report 6267174-1 (Version None)
Quarter: 2009Q3

REPORT INFORMATION
  Report Type: 
  Country: None (occurrence: None)
  Receive Date: 20090714
  Receipt Date: 20090706
  Transmission Date: 20100115
  Serious: Yes (Disabling)
  Sender: FDA-Public Use
  Company Number: US-JNJFOC-20080600250

PATIENT
  Age: 43 Year
  Sex: Female

DRUGS (1)
  1. LEVAQUIN [Suspect]
     Indication: URINARY TRACT INFECTION

REACTIONS (5)
  - CONTUSION [None]
  - MULTIPLE INJURIES [None]
  - RHEUMATOID ARTHRITIS [None]
  - SYNOVITIS [None]
  - TENDONITIS [None]
